FAERS Safety Report 5763269-7 (Version None)
Quarter: 2008Q2

REPORT INFORMATION
  Report Type: 
  Country: None (occurrence: None)
  Receive Date: 20080602
  Receipt Date: 20071228
  Transmission Date: 20081010
  Serious: No
  Sender: FDA-Public Use
  Company Number: PHEH2007US16184

PATIENT
  Sex: Male

DRUGS (2)
  1. TEKTURNA [Suspect]
     Dosage: 300MG
     Dates: start: 20070901
  2. SPIRONOLACTONE [Suspect]
     Dosage: 25 MG

REACTIONS (3)
  - GAIT DISTURBANCE [None]
  - GOUT [None]
  - PAIN IN EXTREMITY [None]
